FAERS Safety Report 5564602-1 (Version None)
Quarter: 2007Q4

REPORT INFORMATION
  Report Type: 
  Country: None (occurrence: None)
  Receive Date: 20071218
  Receipt Date: 20071210
  Transmission Date: 20080405
  Serious: Yes (Other)
  Sender: FDA-Public Use
  Company Number: US-ASTRAZENECA-2007UW28045

PATIENT
  Age: 75 Year
  Sex: Female

DRUGS (1)
  1. PRILOSEC [Suspect]
     Indication: GASTROOESOPHAGEAL REFLUX DISEASE
     Route: 048
     Dates: start: 20020101

REACTIONS (3)
  - BLOOD PRESSURE INCREASED [None]
  - JOINT SWELLING [None]
  - NEUROPATHY PERIPHERAL [None]
